FAERS Safety Report 18256720 (Version 1)
Quarter: 2020Q3

REPORT INFORMATION
  Report Type: Spontaneous
  Country: US (occurrence: US)
  Receive Date: 20200911
  Receipt Date: 20200911
  Transmission Date: 20201103
  Serious: Yes (Hospitalization)
  Sender: FDA-Public Use
  Company Number: US-LUPIN PHARMACEUTICALS INC.-2020-05764

PATIENT
  Age: 16 Year
  Sex: Female

DRUGS (11)
  1. NORMAL SALINE [Interacting]
     Active Substance: SODIUM CHLORIDE
     Indication: ORTHOSTATIC HYPOTENSION
     Dosage: 3 LITER
     Route: 042
  2. CETIRIZINE HYDROCHLORIDE. [Interacting]
     Active Substance: CETIRIZINE HYDROCHLORIDE
     Indication: PRODUCT USED FOR UNKNOWN INDICATION
     Dosage: UNK
     Route: 065
  3. DIPHENHYDRAMINE. [Interacting]
     Active Substance: DIPHENHYDRAMINE
     Indication: PRODUCT USED FOR UNKNOWN INDICATION
     Dosage: UNK
     Route: 065
  4. DEXTROMETHORPHAN [Interacting]
     Active Substance: DEXTROMETHORPHAN
     Indication: PRODUCT USED FOR UNKNOWN INDICATION
     Dosage: UNK
     Route: 065
  5. MELATONIN [Interacting]
     Active Substance: MELATONIN
     Indication: PRODUCT USED FOR UNKNOWN INDICATION
     Dosage: 180 MILLIGRAM (INGESTED TWENTY 9MG MELATONIN TABLETS (TOTAL 180MG))
     Route: 048
  6. TRIMETHOPRIM. [Interacting]
     Active Substance: TRIMETHOPRIM
     Indication: PRODUCT USED FOR UNKNOWN INDICATION
     Dosage: UNK
     Route: 065
  7. HYDROXYZINE [Interacting]
     Active Substance: HYDROXYZINE HYDROCHLORIDE
     Indication: ANXIETY
     Dosage: 50 MILLIGRAM
     Route: 048
  8. GUANFACINE. [Interacting]
     Active Substance: GUANFACINE
     Indication: ATTENTION DEFICIT HYPERACTIVITY DISORDER
     Dosage: 4 MILLIGRAM (INGESTED TWICE HER PRESCRIBED DAILY DOSE OF GUANFACINE IMMEDIATE?RELEASE (4 MG TOTAL))
     Route: 048
  9. FLUOXETINE [Suspect]
     Active Substance: FLUOXETINE HYDROCHLORIDE
     Indication: DEPRESSION
     Dosage: 40 MILLIGRAM
     Route: 048
  10. DEXTRORPHAN [Interacting]
     Active Substance: DEXTRORPHAN
     Indication: PRODUCT USED FOR UNKNOWN INDICATION
     Dosage: UNK
     Route: 065
  11. METHYLPHENIDATE HYDROCHLORIDE. [Interacting]
     Active Substance: METHYLPHENIDATE HYDROCHLORIDE
     Indication: ATTENTION DEFICIT HYPERACTIVITY DISORDER
     Dosage: 72 MILLIGRAM (INGESTED TWICE HER PRESCRIBED DAILY DOSE OF METHYLPHENIDATE EXTENDED?RELEASE (72MG TOT
     Route: 048

REACTIONS (7)
  - Intentional product misuse [Unknown]
  - Leukocytosis [Unknown]
  - Paraesthesia [Unknown]
  - Orthostatic hypotension [Recovered/Resolved]
  - Drug interaction [Unknown]
  - Hyporesponsive to stimuli [Unknown]
  - Vision blurred [Unknown]
